FAERS Safety Report 11833600 (Version 3)
Quarter: 2016Q3

REPORT INFORMATION
  Report Type: Spontaneous
  Country: US (occurrence: US)
  Receive Date: 20151214
  Receipt Date: 20160819
  Transmission Date: 20161109
  Serious: Yes (Disabling, Other)
  Sender: FDA-Public Use
  Company Number: US-TEVA-617517USA

PATIENT
  Age: 23 Year
  Sex: Female

DRUGS (2)
  1. CIPROFLOXACIN. [Suspect]
     Active Substance: CIPROFLOXACIN
     Indication: DIARRHOEA INFECTIOUS
     Dosage: 500MG 2 TIMES A DAY FOR 10 DAYS
     Route: 065
  2. MOXIFLOXACIN. [Suspect]
     Active Substance: MOXIFLOXACIN
     Indication: OROPHARYNGEAL PAIN
     Dosage: 400MG DAILY FOR 3 DAYS
     Route: 065

REACTIONS (36)
  - Ulcerative keratitis [Unknown]
  - Tendonitis [Unknown]
  - Multiple chemical sensitivity [Unknown]
  - Gastrointestinal pain [Not Recovered/Not Resolved]
  - Arthralgia [Unknown]
  - Mood swings [Unknown]
  - Migraine [Not Recovered/Not Resolved]
  - Orthostatic hypotension [Unknown]
  - Dizziness [Not Recovered/Not Resolved]
  - Upper respiratory tract infection [Not Recovered/Not Resolved]
  - Postural orthostatic tachycardia syndrome [Unknown]
  - Polyneuropathy [Unknown]
  - Amnesia [Not Recovered/Not Resolved]
  - Dyspnoea [Unknown]
  - Dry eye [Unknown]
  - Disturbance in attention [Not Recovered/Not Resolved]
  - Toxicity to various agents [Not Recovered/Not Resolved]
  - Cognitive disorder [Unknown]
  - Micturition urgency [Unknown]
  - Alopecia [Unknown]
  - Seizure [Unknown]
  - Sinusitis [Not Recovered/Not Resolved]
  - Fatigue [Not Recovered/Not Resolved]
  - Muscle contractions involuntary [Unknown]
  - Insomnia [Unknown]
  - Irritable bowel syndrome [Not Recovered/Not Resolved]
  - Gastrooesophageal reflux disease [Unknown]
  - Mydriasis [Unknown]
  - Dry mouth [Unknown]
  - Weight decreased [Unknown]
  - Impaired gastric emptying [Unknown]
  - Tachycardia [Not Recovered/Not Resolved]
  - Myalgia [Unknown]
  - Muscular weakness [Unknown]
  - Sinus disorder [Unknown]
  - Nausea [Not Recovered/Not Resolved]
